FAERS Safety Report 5631924-5 (Version None)
Quarter: 2008Q1

REPORT INFORMATION
  Report Type: 
  Country: None (occurrence: None)
  Receive Date: 20080220
  Receipt Date: 20080207
  Transmission Date: 20080703
  Serious: Yes (Other)
  Sender: FDA-Public Use
  Company Number: AU-AMGEN-KDL263784

PATIENT
  Sex: Male

DRUGS (2)
  1. ARANESP [Suspect]
     Indication: RENAL FAILURE CHRONIC
     Route: 058
     Dates: start: 20050207, end: 20080125
  2. GLEEVEC [Suspect]
     Dates: start: 20010101, end: 20061201

REACTIONS (2)
  - ANAEMIA [None]
  - BONE MARROW FAILURE [None]
